FAERS Safety Report 6540179-9 (Version None)
Quarter: 2010Q1

REPORT INFORMATION
  Report Type: 
  Country: None (occurrence: None)
  Receive Date: 20100115
  Receipt Date: 20100105
  Transmission Date: 20100710
  Serious: Yes (Other)
  Sender: FDA-Public Use
  Company Number: GB-WATSON-2010-00132

PATIENT
  Age: 83 Year
  Sex: Male

DRUGS (3)
  1. DOXAZOSIN (WATSON LABORATORIES) [Suspect]
     Indication: HYPERTENSION
     Route: 048
  2. CYCLOPENTOLATE HCL [Concomitant]
     Indication: CATARACT OPERATION
     Dosage: 1 DF, SINGLE
     Route: 031
  3. PHENYLEPHRINE [Concomitant]
     Indication: CATARACT OPERATION
     Dosage: 1 DF, SINGLE
     Route: 031

REACTIONS (1)
  - FLOPPY IRIS SYNDROME [None]
